FAERS Safety Report 6116888-2 (Version None)
Quarter: 2009Q1

REPORT INFORMATION
  Report Type: 
  Country: None (occurrence: None)
  Receive Date: 20090314
  Receipt Date: 20090105
  Transmission Date: 20090719
  Serious: No
  Sender: FDA-Public Use
  Company Number: US-ABBOTT-08P-163-0495378-00

PATIENT
  Sex: Female
  Weight: 54.48 kg

DRUGS (5)
  1. HUMIRA [Suspect]
     Indication: CROHN'S DISEASE
     Route: 058
     Dates: start: 20081204
  2. HUMIRA [Suspect]
     Indication: COLITIS
  3. PREDNISONE [Concomitant]
     Indication: COLITIS
     Route: 048
  4. LEVOXYL [Concomitant]
     Indication: DRUG USE FOR UNKNOWN INDICATION
     Route: 048
  5. CELEXA [Concomitant]
     Indication: DRUG USE FOR UNKNOWN INDICATION
     Route: 048

REACTIONS (10)
  - ARTHRALGIA [None]
  - ASTHENIA [None]
  - BACK PAIN [None]
  - CUTANEOUS VASCULITIS [None]
  - GAIT DISTURBANCE [None]
  - HYPOAESTHESIA [None]
  - LOCAL SWELLING [None]
  - OEDEMA [None]
  - PAIN [None]
  - ULCER [None]
